FAERS Safety Report 24630525 (Version 1)
Quarter: 2024Q4

REPORT INFORMATION
  Report Type: Spontaneous
  Country: US (occurrence: US)
  Receive Date: 20241118
  Receipt Date: 20241118
  Transmission Date: 20250115
  Serious: No
  Sender: ASCENT PHARMACEUTICALS INC
  Company Number: US-ASCENT-2024ASSPO00045

PATIENT

DRUGS (1)
  1. METHYLPHENIDATE HYDROCHLORIDE [Suspect]
     Active Substance: METHYLPHENIDATE HYDROCHLORIDE
     Indication: Attention deficit hyperactivity disorder
     Dosage: FOR OVER THREE YEARS
     Route: 065
     Dates: start: 20241004

REACTIONS (6)
  - Sluggishness [Unknown]
  - Withdrawal syndrome [Unknown]
  - Lethargy [Unknown]
  - Illness [Unknown]
  - Drug ineffective [Unknown]
  - Product formulation issue [Unknown]
